FAERS Safety Report 4497054-3 (Version None)
Quarter: 2004Q3

REPORT INFORMATION
  Report Type: 
  Country: None (occurrence: None)
  Receive Date: 20040927
  Receipt Date: 20040811
  Transmission Date: 20050211
  Serious: No
  Sender: FDA-Public Use
  Company Number: USA040464001

PATIENT
  Age: 70 Year
  Sex: Female
  Weight: 58 kg

DRUGS (12)
  1. STRATTERA [Suspect]
     Dosage: 18 MG DAY
     Dates: start: 20040326, end: 20040402
  2. SYMBYAX [Suspect]
     Indication: DEPRESSION
     Dates: start: 20040326
  3. FLONASE [Concomitant]
  4. LOTENSIN [Concomitant]
  5. PENTA-TRIAMTERENE HCTZ [Concomitant]
  6. DITROPAN XL [Concomitant]
  7. PRAVACHOL [Concomitant]
  8. PREVACID [Concomitant]
  9. AMBIEN [Concomitant]
  10. RESTORIL [Concomitant]
  11. ASPIRIN [Concomitant]
  12. MULTIVITAMIN [Concomitant]

REACTIONS (3)
  - DRUG INEFFECTIVE [None]
  - HYPERTENSION [None]
  - INTRAOCULAR PRESSURE INCREASED [None]
